FAERS Safety Report 9135682 (Version 1)
Quarter: 2013Q1

REPORT INFORMATION
  Report Type: Spontaneous
  Country: CR (occurrence: CR)
  Receive Date: 20130304
  Receipt Date: 20130304
  Transmission Date: 20140127
  Serious: Yes (Other)
  Sender: FDA-Public Use
  Company Number: PHHY2013CR019893

PATIENT
  Age: 70 Year
  Sex: Female

DRUGS (4)
  1. CO-DIOVAN [Suspect]
     Indication: HYPERTENSION
     Dosage: 1 DF, (300/25 MG) QD
     Route: 048
  2. RASILEZ [Suspect]
     Indication: HYPERTENSION
     Dosage: 1 DF, (300 MG) QD
     Route: 048
  3. RIVOTRIL [Concomitant]
     Dosage: 3 DRP, PRN
     Route: 048
  4. LOVASTATIN [Concomitant]
     Dosage: 1 DF, Q48H

REACTIONS (3)
  - Benign neoplasm of thyroid gland [Not Recovered/Not Resolved]
  - Anxiety [Unknown]
  - Blood pressure increased [Unknown]
